FAERS Safety Report 15422385 (Version 1)
Quarter: 2018Q3

REPORT INFORMATION
  Report Type: Spontaneous
  Country: GB (occurrence: GB)
  Receive Date: 20180925
  Receipt Date: 20180925
  Transmission Date: 20181010
  Serious: Yes (Hospitalization, Other)
  Sender: FDA-Public Use
  Company Number: GB-ROCHE-2185962

PATIENT
  Age: 41 Year
  Sex: Female

DRUGS (5)
  1. CYCLOPHOSPHAMIDE. [Concomitant]
     Active Substance: CYCLOPHOSPHAMIDE
     Route: 065
     Dates: start: 20130918, end: 20140107
  2. GAZYVARO [Suspect]
     Active Substance: OBINUTUZUMAB
     Indication: INFUSION RELATED REACTION
     Route: 065
     Dates: start: 20130918, end: 20140107
  3. DOXORUBICIN [Concomitant]
     Active Substance: DOXORUBICIN
     Route: 065
     Dates: start: 20130918, end: 20140107
  4. PREDNISONE. [Concomitant]
     Active Substance: PREDNISONE
     Route: 065
     Dates: start: 20130918, end: 20140107
  5. VINCRISTINE [Concomitant]
     Active Substance: VINCRISTINE
     Route: 065
     Dates: start: 20130918, end: 20140107

REACTIONS (11)
  - Neutropenia [Unknown]
  - Respiratory tract infection [Unknown]
  - Mastitis [Unknown]
  - Infusion related reaction [Unknown]
  - Cough [Unknown]
  - Peripheral swelling [Unknown]
  - Fistula discharge [Unknown]
  - Breast abscess [Unknown]
  - Arthralgia [Unknown]
  - Fatigue [Unknown]
  - Nasopharyngitis [Unknown]
